FAERS Safety Report 9099623 (Version 1)
Quarter: 2013Q1

REPORT INFORMATION
  Report Type: Spontaneous
  Country: US (occurrence: US)
  Receive Date: 20130214
  Receipt Date: 20130214
  Transmission Date: 20140127
  Serious: Yes (Other)
  Sender: FDA-Public Use
  Company Number: PHHY2013US012458

PATIENT
  Age: 72 Year
  Sex: Male

DRUGS (6)
  1. ENTACAPONE [Suspect]
     Indication: PARKINSON^S DISEASE
     Dosage: 100 MG, DAILY EVERY 04 HOURS
  2. ENTACAPONE [Suspect]
     Dosage: 100 MG, DAILY EVERY 03 HOURS
  3. AMITRIPTYLINE [Concomitant]
     Dosage: 50 MG, DAILY AT NIGHT
  4. ALPRAZOLAM [Concomitant]
     Dosage: 0.5 MG, BID
  5. CARBIDOPA/LEVODOPA [Concomitant]
     Dosage: 0.5 DF, EVERY 02 HOUR DAILY
  6. AMANTADINE [Concomitant]
     Dosage: 100 MG, DAILY

REACTIONS (5)
  - Dopamine dysregulation syndrome [Recovered/Resolved]
  - On and off phenomenon [Unknown]
  - Drug dependence [Unknown]
  - Dyskinesia [Unknown]
  - Drug ineffective [Unknown]
